FAERS Safety Report 5067614-X (Version None)
Quarter: 2006Q3

REPORT INFORMATION
  Report Type: 
  Country: None (occurrence: None)
  Receive Date: 20060731
  Receipt Date: 20060712
  Transmission Date: 20061208
  Serious: Yes (Other)
  Sender: FDA-Public Use
  Company Number: US200603000856

PATIENT
  Age: 85 Year
  Sex: Female

DRUGS (6)
  1. FORTEO [Suspect]
     Indication: OSTEOPOROSIS
     Dosage: 20 UG
     Dates: start: 20060118, end: 20060126
  2. FORTEO [Concomitant]
  3. PROCARDIA [Concomitant]
  4. DIOVAN [Concomitant]
  5. LANOXIN [Concomitant]
  6. ASPIRIN [Concomitant]

REACTIONS (2)
  - FALL [None]
  - SYNCOPE [None]
